FAERS Safety Report 9924299 (Version 1)
Quarter: 2014Q1

REPORT INFORMATION
  Report Type: Report from Study
  Country: US (occurrence: US)
  Receive Date: 20140226
  Receipt Date: 20140226
  Transmission Date: 20141002
  Serious: Yes (Other)
  Sender: FDA-Public Use
  Company Number: US-ROCHE-1333547

PATIENT
  Age: 54 Year
  Sex: Male

DRUGS (9)
  1. LUCENTIS [Suspect]
     Indication: DIABETIC RETINAL OEDEMA
     Route: 050
  2. LUCENTIS [Suspect]
     Indication: DIABETIC RETINOPATHY
     Route: 050
  3. AVASTIN [Suspect]
     Indication: PRODUCT USED FOR UNKNOWN INDICATION
     Route: 065
  4. HYDROCHLOROTHIAZIDE [Concomitant]
  5. GLIPIZIDE [Concomitant]
  6. TYLENOL [Concomitant]
  7. METFORMIN HYDROCHLORIDE [Concomitant]
     Route: 065
  8. SIMVASTATIN [Concomitant]
  9. AZOR (UNITED STATES) [Concomitant]

REACTIONS (16)
  - Eye irritation [Recovered/Resolved]
  - Blood glucose fluctuation [Unknown]
  - Eye pain [Unknown]
  - Vision blurred [Unknown]
  - Vitreous floaters [Unknown]
  - Eye pain [Unknown]
  - Visual acuity reduced [Unknown]
  - Type 2 diabetes mellitus [Unknown]
  - Cataract [Unknown]
  - Retinal haemorrhage [Unknown]
  - Cardiac disorder [Unknown]
  - Hypertension [Unknown]
  - Eye injury [Unknown]
  - Pupillary light reflex tests abnormal [Unknown]
  - Vitreous detachment [Unknown]
  - Cataract nuclear [Unknown]
